FAERS Safety Report 4691944-4 (Version None)
Quarter: 2005Q2

REPORT INFORMATION
  Report Type: 
  Country: None (occurrence: None)
  Receive Date: 20050614
  Receipt Date: 20050531
  Transmission Date: 20051028
  Serious: Yes (Death)
  Sender: FDA-Public Use
  Company Number: 05USA0127

PATIENT
  Age: 71 Year
  Sex: Female

DRUGS (5)
  1. AGGRASTAT (TIROFIBAN HYDROCHLORIDE) [Suspect]
     Indication: ACUTE MYOCARDIAL INFARCTION
     Dates: start: 20050417, end: 20050417
  2. ASPIRIN [Concomitant]
  3. ATORVASTATIN CALCIUM [Concomitant]
  4. CLOPIDOGREL BISULFATE [Concomitant]
  5. OTHER (20 MILLIGRAM) [Concomitant]

REACTIONS (3)
  - VENTRICULAR FAILURE [None]
  - VENTRICULAR FIBRILLATION [None]
  - VENTRICULAR TACHYCARDIA [None]
